FAERS Safety Report 8310667-3 (Version None)
Quarter: 2012Q2

REPORT INFORMATION
  Report Type: 
  Country: None (occurrence: None)
  Receive Date: 20120425
  Receipt Date: 20120417
  Transmission Date: 20120825
  Serious: Yes (Other)
  Sender: FDA-Public Use
  Company Number: US-JNJFOC-20120406689

PATIENT
  Age: 70 Year
  Sex: Female
  Weight: 120.18 kg

DRUGS (16)
  1. ACETYLSALICYLIC ACID SRT [Concomitant]
     Dosage: TAKEN DAILY
  2. GLUCOSAMINE SULFATE [Concomitant]
     Indication: ARTHROPATHY
  3. MEGAVIT B COMPLEX [Concomitant]
     Dosage: TAKEN DAILY
  4. HYDROCHLOROTHIAZIDE [Concomitant]
     Indication: HYPERTENSION
     Dosage: DAILY
  5. NSAIDS [Suspect]
     Indication: PRODUCT USED FOR UNKNOWN INDICATION
     Route: 065
  6. LOVAZA [Concomitant]
     Dosage: TAKEN DAILY
  7. CALCIUM WITH VITAMIN D [Concomitant]
     Dosage: 1200MG/1000MG
  8. IBUPROFEN [Suspect]
     Indication: OSTEOARTHRITIS
     Route: 065
  9. MULTI-VITAMINS [Concomitant]
     Indication: EYE DISORDER
     Dosage: TAKEN DAILY
  10. ATENOLOL [Concomitant]
     Indication: HYPERTENSION
     Dosage: DAILY
  11. CELEBREX [Suspect]
     Dosage: DAILY
     Route: 065
  12. LOSARTAN POTASSIUM [Concomitant]
     Indication: HYPERTENSION
     Dosage: 100 MG DAILY
  13. MELOXICAM [Suspect]
     Indication: OSTEOARTHRITIS
     Route: 065
     Dates: start: 20110101, end: 20111001
  14. SYNTHROID [Concomitant]
     Indication: HYPOTHYROIDISM
     Dosage: TAKEN DAILY
  15. CELEBREX [Suspect]
     Indication: OSTEOARTHRITIS
     Route: 065
  16. CELEBREX [Suspect]
     Route: 065
     Dates: end: 20110101

REACTIONS (8)
  - PAIN IN EXTREMITY [None]
  - BURSITIS [None]
  - LIMB DISCOMFORT [None]
  - BLOOD CHOLESTEROL INCREASED [None]
  - PAIN [None]
  - RENAL IMPAIRMENT [None]
  - MYALGIA [None]
  - MUSCULOSKELETAL DISCOMFORT [None]
